FAERS Safety Report 5419605-4 (Version None)
Quarter: 2007Q3

REPORT INFORMATION
  Report Type: 
  Country: None (occurrence: None)
  Receive Date: 20070820
  Receipt Date: 20070815
  Transmission Date: 20080115
  Serious: Yes (Other)
  Sender: FDA-Public Use
  Company Number: US-GENENTECH-237466

PATIENT
  Sex: Male
  Weight: 48.8 kg

DRUGS (12)
  1. SOMATROPIN [Suspect]
     Indication: RENAL FAILURE CHRONIC
     Dosage: 4.9 MG, QHS
     Route: 058
     Dates: start: 20030601, end: 20070225
  2. CELLCEPT [Concomitant]
     Indication: DRUG USE FOR UNKNOWN INDICATION
     Dosage: 250 MG, QHS
     Dates: start: 19930208
  3. CELLCEPT [Concomitant]
     Dosage: 500 UNK, QAM
     Route: 048
  4. PROGRAF [Concomitant]
     Indication: DRUG USE FOR UNKNOWN INDICATION
     Dosage: 5 MG, QAM
  5. PROGRAF [Concomitant]
     Dosage: 4 MG, QHS
  6. PREDNISONE [Concomitant]
     Indication: DRUG USE FOR UNKNOWN INDICATION
     Dosage: 7 MG, QOD
     Route: 048
     Dates: start: 19930208
  7. CALCIUM CARBONATE [Concomitant]
     Indication: DRUG USE FOR UNKNOWN INDICATION
     Dosage: 600 MG, BID
     Route: 048
  8. HYDROCHLOROTHIAZIDE [Concomitant]
     Indication: DRUG USE FOR UNKNOWN INDICATION
     Dosage: 12.5 MG, QD
     Route: 048
  9. NIFEREX [Concomitant]
     Indication: DRUG USE FOR UNKNOWN INDICATION
     Dosage: 300 MG, QD
     Route: 048
  10. NORVASC [Concomitant]
     Indication: DRUG USE FOR UNKNOWN INDICATION
     Dosage: 5 MG, QAM
  11. NORVASC [Concomitant]
     Dosage: 2.5 MG, QHS
  12. SODIUM BICARBONATE [Concomitant]
     Indication: DRUG USE FOR UNKNOWN INDICATION
     Dosage: 1300 MG, BID
     Route: 048

REACTIONS (1)
  - CHEST PAIN [None]
